FAERS Safety Report 11415863 (Version 1)
Quarter: 2015Q3

REPORT INFORMATION
  Report Type: Spontaneous
  Country: US (occurrence: None)
  Receive Date: 20150824
  Receipt Date: 20150824
  Transmission Date: 20151125
  Serious: Yes (Hospitalization, Disabling)
  Sender: FDA-Public Use
  Company Number: None

PATIENT
  Age: 62 Year
  Sex: Male
  Weight: 98.43 kg

DRUGS (2)
  1. PROTONIX [Suspect]
     Active Substance: PANTOPRAZOLE SODIUM
     Indication: GASTROOESOPHAGEAL REFLUX DISEASE
     Dosage: 1 PILL
     Route: 048
     Dates: start: 20150731, end: 20150821
  2. LOSARTIN [Concomitant]
     Active Substance: LOSARTAN

REACTIONS (7)
  - Dizziness [None]
  - Condition aggravated [None]
  - Nausea [None]
  - Fatigue [None]
  - Gastritis [None]
  - Abdominal pain upper [None]
  - Hyperhidrosis [None]

NARRATIVE: CASE EVENT DATE: 20150821
